FAERS Safety Report 16404202 (Version 1)
Quarter: 2019Q2

REPORT INFORMATION
  Report Type: Spontaneous
  Country: KZ (occurrence: KZ)
  Receive Date: 20190607
  Receipt Date: 20190607
  Transmission Date: 20190711
  Serious: Yes (Hospitalization)
  Sender: FDA-Public Use
  Company Number: KZ-JNJFOC-20190606665

PATIENT
  Age: 24 Year
  Sex: Female

DRUGS (1)
  1. XARELTO [Suspect]
     Active Substance: RIVAROXABAN
     Indication: CEREBROVASCULAR ACCIDENT PROPHYLAXIS
     Route: 048
     Dates: start: 20190513, end: 20190530

REACTIONS (4)
  - Hypoaesthesia [Unknown]
  - Seizure [Unknown]
  - Tremor [Unknown]
  - Menorrhagia [Unknown]

NARRATIVE: CASE EVENT DATE: 20190517
